FAERS Safety Report 18031783 (Version 6)
Quarter: 2022Q3

REPORT INFORMATION
  Report Type: Report from Study
  Country: JP (occurrence: JP)
  Receive Date: 20200716
  Receipt Date: 20220827
  Transmission Date: 20221027
  Serious: Yes (Death, Other)
  Sender: FDA-Public Use
  Company Number: JP-ABBVIE-17K-087-2060489-00

PATIENT
  Age: 72 Year
  Sex: Male
  Weight: 47 kg

DRUGS (3)
  1. CARBIDOPA\LEVODOPA [Suspect]
     Active Substance: CARBIDOPA\LEVODOPA
     Indication: Parkinson^s disease
     Dosage: MD 12 ML, CD 3.6 ML/HR FOR 16 HRS, ED 1 ML/UNIT
     Route: 050
     Dates: start: 20170714
  2. CARBIDOPA\LEVODOPA [Suspect]
     Active Substance: CARBIDOPA\LEVODOPA
  3. ZONISAMIDE [Concomitant]
     Active Substance: ZONISAMIDE
     Indication: Product used for unknown indication
     Route: 048

REACTIONS (17)
  - Tracheostomy [Unknown]
  - Death [Fatal]
  - Eye movement disorder [Recovering/Resolving]
  - Skin irritation [Recovered/Resolved]
  - Decreased appetite [Recovering/Resolving]
  - Incorrect route of product administration [Unknown]
  - Wrong technique in device usage process [Unknown]
  - Device issue [Unknown]
  - Device physical property issue [Unknown]
  - Device occlusion [Unknown]
  - Malaise [Recovered/Resolved]
  - Tremor [Recovering/Resolving]
  - Asthenia [Recovering/Resolving]
  - Rash [Recovering/Resolving]
  - Stoma site extravasation [Recovering/Resolving]
  - Constipation [Recovered/Resolved]
  - Stoma site irritation [Unknown]

NARRATIVE: CASE EVENT DATE: 20170701
